FAERS Safety Report 7986023-4 (Version None)
Quarter: 2011Q4

REPORT INFORMATION
  Report Type: 
  Country: None (occurrence: None)
  Receive Date: 20111216
  Receipt Date: 20110329
  Transmission Date: 20120403
  Serious: Yes (Other)
  Sender: FDA-Public Use
  Company Number: US-BRISTOL-MYERS SQUIBB COMPANY-15461403

PATIENT
  Age: 21 Year
  Sex: Male

DRUGS (1)
  1. ABILIFY [Suspect]
     Dosage: ABILIFY TABLET 10MG BOTTLE 1X30 US

REACTIONS (2)
  - PANIC ATTACK [None]
  - SUICIDAL IDEATION [None]
